FAERS Safety Report 16024597 (Version 1)
Quarter: 2019Q1

REPORT INFORMATION
  Report Type: Spontaneous
  Country: NL (occurrence: NL)
  Receive Date: 20190301
  Receipt Date: 20190301
  Transmission Date: 20190418
  Serious: Yes (Hospitalization, Other)
  Sender: FDA-Public Use
  Company Number: NL-PFIZER INC-2019000541

PATIENT
  Age: 78 Year
  Sex: Male

DRUGS (2)
  1. CYKLOKAPRON [Suspect]
     Active Substance: TRANEXAMIC ACID
     Indication: SPINAL ANAESTHESIA
     Dosage: UNK
  2. CYKLOKAPRON [Suspect]
     Active Substance: TRANEXAMIC ACID
     Dosage: UNK

REACTIONS (6)
  - Hypercapnia [Unknown]
  - Myoclonus [Recovered/Resolved]
  - Hypertension [Unknown]
  - Condition aggravated [Recovered/Resolved]
  - Arrhythmia [Unknown]
  - Wrong product administered [Unknown]
